FAERS Safety Report 12540300 (Version 1)
Quarter: 2016Q3

REPORT INFORMATION
  Report Type: Spontaneous
  Country: US (occurrence: US)
  Receive Date: 20160708
  Receipt Date: 20160708
  Transmission Date: 20161109
  Serious: No
  Sender: FDA-Public Use
  Company Number: US-DSJP-DSU-2015-125991

PATIENT
  Age: 79 Year
  Sex: Female
  Weight: 93.88 kg

DRUGS (1)
  1. BENICAR HCT [Suspect]
     Active Substance: HYDROCHLOROTHIAZIDE\OLMESARTAN MEDOXOMIL
     Indication: HYPERTENSION
     Dosage: 40-12.5 MG, QD
     Route: 048
     Dates: start: 20090610, end: 20131230

REACTIONS (4)
  - Diverticulum [Unknown]
  - Anal incontinence [Recovered/Resolved]
  - Malabsorption [Unknown]
  - Polyp [Recovered/Resolved]

NARRATIVE: CASE EVENT DATE: 20121015
